FAERS Safety Report 4830586-4 (Version None)
Quarter: 2005Q4

REPORT INFORMATION
  Report Type: 
  Country: None (occurrence: None)
  Receive Date: 20051115
  Receipt Date: 20051102
  Transmission Date: 20060501
  Serious: Yes (Life-Threatening, Hospitalization, Other)
  Sender: FDA-Public Use
  Company Number: 2005144213

PATIENT
  Age: 3 Year
  Sex: Female
  Weight: 15 kg

DRUGS (8)
  1. ZYVOX [Suspect]
     Indication: MYCOBACTERIAL INFECTION
     Dosage: 600 MG (300 MG, 2 IN D), INTRAVENOUS
     Route: 042
     Dates: start: 20041117, end: 20050402
  2. ALDACTONE [Concomitant]
  3. URSODIOL [Concomitant]
  4. CLARITHROMYCIN [Concomitant]
  5. IZILOX (MOXIFLOXACIN) [Concomitant]
  6. RIFABUTIN (RIFABUTIN) [Concomitant]
  7. AMIKIN [Concomitant]
  8. MYAMBUTOL [Concomitant]

REACTIONS (7)
  - ANAEMIA [None]
  - CARDIAC FAILURE [None]
  - DRUG TOXICITY [None]
  - METABOLIC ACIDOSIS [None]
  - PERICARDIAL EFFUSION [None]
  - THROMBOCYTOPENIA [None]
  - WHITE BLOOD CELL COUNT DECREASED [None]
